FAERS Safety Report 6670402-1 (Version None)
Quarter: 2010Q2

REPORT INFORMATION
  Report Type: 
  Country: None (occurrence: None)
  Receive Date: 20100407
  Receipt Date: 20100329
  Transmission Date: 20101027
  Serious: Yes (Death, Hospitalization, Other)
  Sender: FDA-Public Use
  Company Number: US-BIOGENIDEC-2009BI041411

PATIENT
  Age: 59 Year
  Sex: Female

DRUGS (2)
  1. AVONEX [Suspect]
     Indication: MULTIPLE SCLEROSIS
     Route: 030
     Dates: start: 20040301
  2. AVONEX [Suspect]
     Route: 030
     Dates: start: 19960520

REACTIONS (18)
  - AMMONIA INCREASED [None]
  - ANOXIC ENCEPHALOPATHY [None]
  - AORTIC ARTERIOSCLEROSIS [None]
  - CHOLELITHIASIS [None]
  - COLONIC PSEUDO-OBSTRUCTION [None]
  - DEPRESSED LEVEL OF CONSCIOUSNESS [None]
  - DIARRHOEA [None]
  - DIVERTICULUM INTESTINAL [None]
  - FEEDING TUBE COMPLICATION [None]
  - GASTROINTESTINAL HAEMORRHAGE [None]
  - HEPATIC STEATOSIS [None]
  - HIATUS HERNIA [None]
  - NEPHROLITHIASIS [None]
  - PNEUMONIA [None]
  - PULMONARY EMBOLISM [None]
  - RENAL ATROPHY [None]
  - RENAL CYST [None]
  - SEPTIC SHOCK [None]
